FAERS Safety Report 21699959 (Version 1)
Quarter: 2022Q4

REPORT INFORMATION
  Report Type: Spontaneous
  Country: US (occurrence: None)
  Receive Date: 20221207
  Receipt Date: 20221207
  Transmission Date: 20230113
  Serious: No
  Sender: FDA-Public Use
  Company Number: None

PATIENT
  Age: 17 Year
  Sex: Female
  Weight: 67.95 kg

DRUGS (4)
  1. AZELASTINE HYDROCHLORIDE [Suspect]
     Active Substance: AZELASTINE HYDROCHLORIDE
     Indication: Chronic sinusitis
     Dosage: FREQUENCY : TWICE A DAY; UP THE NOSE?
     Route: 055
     Dates: start: 20221203, end: 20221207
  2. AZELASTINE HYDROCHLORIDE [Suspect]
     Active Substance: AZELASTINE HYDROCHLORIDE
     Indication: Seasonal allergy
  3. Minipill [Concomitant]
  4. AMOXICILLIN [Concomitant]
     Active Substance: AMOXICILLIN

REACTIONS (3)
  - Pain [None]
  - Burning sensation [None]
  - Throat irritation [None]

NARRATIVE: CASE EVENT DATE: 20221206
